FAERS Safety Report 12349124 (Version 3)
Quarter: 2016Q2

REPORT INFORMATION
  Report Type: Spontaneous
  Country: US (occurrence: US)
  Receive Date: 20160509
  Receipt Date: 20160606
  Transmission Date: 20160815
  Serious: Yes (Hospitalization, Other)
  Sender: FDA-Public Use
  Company Number: US-ALLERGAN-1655979US

PATIENT
  Age: 77 Year
  Sex: Female
  Weight: 69.84 kg

DRUGS (2)
  1. TIMOLOL MALEATE. [Suspect]
     Active Substance: TIMOLOL MALEATE
     Indication: GLAUCOMA
     Dosage: 2 GTT, UNK
     Route: 047
  2. LUMIGAN [Suspect]
     Active Substance: BIMATOPROST
     Indication: GLAUCOMA
     Dosage: 2 GTT, QHS
     Route: 047

REACTIONS (8)
  - Breast cancer [Recovered/Resolved]
  - Cardiac disorder [Recovered/Resolved]
  - Blood triglycerides increased [Not Recovered/Not Resolved]
  - Bone pain [Recovered/Resolved]
  - Blood pressure increased [Recovered/Resolved]
  - Respiratory tract infection [Recovered/Resolved]
  - Hypothyroidism [Not Recovered/Not Resolved]
  - Weight decreased [Not Recovered/Not Resolved]

NARRATIVE: CASE EVENT DATE: 200611
